FAERS Safety Report 7954559-8 (Version None)
Quarter: 2011Q4

REPORT INFORMATION
  Report Type: 
  Country: None (occurrence: None)
  Receive Date: 20111202
  Receipt Date: 20111123
  Transmission Date: 20120403
  Serious: Yes (Hospitalization)
  Sender: FDA-Public Use
  Company Number: PHHO2011US019687

PATIENT
  Age: 73 Year
  Sex: Male
  Weight: 88 kg

DRUGS (15)
  1. ROHIPNOL [Concomitant]
  2. SERTRALINE HYDROCHLORIDE [Concomitant]
  3. ALLOPURINOL [Concomitant]
  4. SUNITINIB MALATE [Concomitant]
     Dosage: 25 MG, QD
     Route: 048
     Dates: start: 20091127
  5. ZOLEDRONIC ACID [Suspect]
     Dosage: UNK
     Dates: start: 20080917, end: 20090501
  6. PREDNISONE TAB [Concomitant]
     Indication: PROSTATE CANCER
     Dosage: 5 MG, BID
     Route: 048
     Dates: start: 20090722, end: 20091027
  7. OMEPRAZOLE [Concomitant]
  8. PREDNISONE TAB [Concomitant]
     Dosage: NO TREATMENT RECEIVED
     Dates: start: 20091028, end: 20091126
  9. SUNITINIB MALATE [Concomitant]
     Indication: PROSTATE CANCER
     Dosage: 37.5 MG, QD
     Route: 048
     Dates: start: 20090722, end: 20091027
  10. SUNITINIB MALATE [Concomitant]
     Dosage: NO TREATMENT RECEIVED
     Dates: start: 20091028, end: 20091126
  11. LYRICA [Concomitant]
  12. PREDNISONE TAB [Concomitant]
     Dosage: 5 MG, BID
     Route: 048
     Dates: start: 20091127
  13. METFORMIN HCL [Concomitant]
  14. ENALAPRIL MALEATE [Concomitant]
  15. DIAPEZAM [Concomitant]

REACTIONS (1)
  - OSTEONECROSIS OF JAW [None]
